FAERS Safety Report 4497634-5 (Version None)
Quarter: 2004Q4

REPORT INFORMATION
  Report Type: 
  Country: None (occurrence: None)
  Receive Date: 20041104
  Receipt Date: 20041019
  Transmission Date: 20050328
  Serious: Yes (Other)
  Sender: FDA-Public Use
  Company Number: 2004-0007414

PATIENT
  Age: 29 Year
  Sex: Male

DRUGS (4)
  1. VIREAD [Suspect]
     Dosage: 300 MG, 1 IN 1 D, ORAL
     Route: 048
     Dates: start: 20040722
  2. KALETRA [Suspect]
     Dates: end: 20020101
  3. ZERIT [Suspect]
  4. VIDEX EC [Suspect]

REACTIONS (1)
  - BLOOD BILIRUBIN INCREASED [None]
